FAERS Safety Report 7536724-7 (Version None)
Quarter: 2011Q2

REPORT INFORMATION
  Report Type: 
  Country: None (occurrence: None)
  Receive Date: 20110609
  Receipt Date: 20110601
  Transmission Date: 20111010
  Serious: Yes (Hospitalization)
  Sender: FDA-Public Use
  Company Number: B0723312A

PATIENT
  Sex: Female

DRUGS (2)
  1. LAMICTAL [Suspect]
     Dosage: 25MG PER DAY
     Route: 048
     Dates: start: 20110406, end: 20110429
  2. ESCITALOPRAM [Suspect]
     Dosage: 20MG PER DAY
     Route: 048
     Dates: start: 20110406, end: 20110429

REACTIONS (13)
  - OROPHARYNGEAL DISCOMFORT [None]
  - PYREXIA [None]
  - PHARYNGITIS [None]
  - CONDITION AGGRAVATED [None]
  - RASH [None]
  - CHEILITIS [None]
  - BLISTER [None]
  - STEVENS-JOHNSON SYNDROME [None]
  - ERYTHEMA MULTIFORME [None]
  - SKIN LESION [None]
  - CONJUNCTIVITIS [None]
  - MOUTH ULCERATION [None]
  - PROTEIN TOTAL ABNORMAL [None]
